FAERS Safety Report 10133203 (Version 1)
Quarter: 2014Q2

REPORT INFORMATION
  Report Type: Spontaneous
  Country: ID (occurrence: ID)
  Receive Date: 20140428
  Receipt Date: 20140428
  Transmission Date: 20141212
  Serious: Yes (Death)
  Sender: FDA-Public Use
  Company Number: ID-SA-2014SA050462

PATIENT
  Age: 42 Year
  Sex: Male

DRUGS (2)
  1. LOVENOX [Suspect]
     Indication: THROMBOSIS PROPHYLAXIS
     Route: 058
     Dates: start: 20100504, end: 20100511
  2. LOVENOX [Suspect]
     Indication: MALAISE
     Route: 058
     Dates: start: 20100504, end: 20100511

REACTIONS (3)
  - Cardiogenic shock [Fatal]
  - Acute myocardial infarction [Fatal]
  - Gastrointestinal haemorrhage [Fatal]
